FAERS Safety Report 4817858-4 (Version None)
Quarter: 2005Q4

REPORT INFORMATION
  Report Type: 
  Country: None (occurrence: None)
  Receive Date: 20051031
  Receipt Date: 20051031
  Transmission Date: 20060501
  Serious: Yes (Hospitalization, Other)
  Sender: FDA-Public Use
  Company Number: None

PATIENT
  Age: 53 Year
  Sex: Male
  Weight: 70.7611 kg

DRUGS (1)
  1. METHIMAZOLE [Suspect]
     Dosage: 10 MG PO Q8
     Route: 048

REACTIONS (2)
  - NEUTROPENIA [None]
  - PYREXIA [None]
